FAERS Safety Report 21886081 (Version 1)
Quarter: 2023Q1

REPORT INFORMATION
  Report Type: Spontaneous
  Country: US (occurrence: None)
  Receive Date: 20230118
  Receipt Date: 20230118
  Transmission Date: 20230417
  Serious: No
  Sender: FDA-Public Use
  Company Number: None

PATIENT
  Age: 53 Year
  Sex: Female
  Weight: 54 kg

DRUGS (2)
  1. DEXTROAMPHETAMINE [Suspect]
     Active Substance: DEXTROAMPHETAMINE
     Indication: Attention deficit hyperactivity disorder
     Dosage: OTHER QUANTITY : 1 TABLET(S);?FREQUENCY : DAILY;?
     Route: 048
     Dates: end: 20230117
  2. VITAMIN B [Concomitant]
     Active Substance: VITAMIN B

REACTIONS (12)
  - Drug ineffective [None]
  - Sedation [None]
  - Somnolence [None]
  - Confusional state [None]
  - Cognitive disorder [None]
  - Impaired driving ability [None]
  - Road traffic accident [None]
  - Attention deficit hyperactivity disorder [None]
  - Condition aggravated [None]
  - Paradoxical drug reaction [None]
  - Irritability [None]
  - Product complaint [None]

NARRATIVE: CASE EVENT DATE: 20221123
